FAERS Safety Report 5507550-5 (Version None)
Quarter: 2007Q4

REPORT INFORMATION
  Report Type: 
  Country: None (occurrence: None)
  Receive Date: 20071105
  Receipt Date: 20071105
  Transmission Date: 20080405
  Serious: No
  Sender: FDA-Public Use
  Company Number: None

PATIENT
  Sex: Female
  Weight: 28.6 kg

DRUGS (1)
  1. DIPHENYLCYCLOPROPENONE  0.5% [Suspect]
     Indication: ALOPECIA TOTALIS
     Dosage: WEEKLY  TOP
     Route: 061
     Dates: start: 20070118, end: 20071011

REACTIONS (3)
  - BLISTER [None]
  - RASH PRURITIC [None]
  - WOUND SECRETION [None]
